FAERS Safety Report 6718718-4 (Version None)
Quarter: 2010Q2

REPORT INFORMATION
  Report Type: 
  Country: None (occurrence: None)
  Receive Date: 20100505
  Receipt Date: 20100420
  Transmission Date: 20101027
  Serious: Yes (Other)
  Sender: FDA-Public Use
  Company Number: 20100177

PATIENT
  Age: 2 Year
  Sex: Female

DRUGS (1)
  1. VASOPRESSIN INJECTION, USP (0410-10) (VASOPRESSIN) [Suspect]
     Indication: SEPTIC SHOCK
     Dosage: 0.003-0.005 U/KG/MIN INTRAVENOUS
     Route: 042

REACTIONS (3)
  - INTERNATIONAL NORMALISED RATIO INCREASED [None]
  - MELAENA [None]
  - PLATELET COUNT DECREASED [None]
